FAERS Safety Report 20049352 (Version 1)
Quarter: 2021Q4

REPORT INFORMATION
  Report Type: Spontaneous
  Country: DE (occurrence: None)
  Receive Date: 20211109
  Receipt Date: 20211109
  Transmission Date: 20220303
  Serious: Yes (Other)
  Sender: FDA-Public Use
  Company Number: 2021A796968

PATIENT
  Sex: Female

DRUGS (1)
  1. TAGRISSO [Suspect]
     Active Substance: OSIMERTINIB
     Route: 048
     Dates: start: 201811

REACTIONS (3)
  - Pulmonary fibrosis [Unknown]
  - Lung disorder [Unknown]
  - Pneumonitis [Unknown]

NARRATIVE: CASE EVENT DATE: 20210801
